FAERS Safety Report 25463452 (Version 1)
Quarter: 2025Q2

REPORT INFORMATION
  Report Type: Spontaneous
  Country: EG (occurrence: EG)
  Receive Date: 20250620
  Receipt Date: 20250620
  Transmission Date: 20250716
  Serious: Yes (Other)
  Sender: MERCK SHARP & DOHME LLC
  Company Number: EG-009507513-2297297

PATIENT
  Sex: Female

DRUGS (3)
  1. KEYTRUDA [Suspect]
     Active Substance: PEMBROLIZUMAB
     Indication: Renal cell carcinoma
     Route: 042
     Dates: start: 20230828
  2. KEYTRUDA [Suspect]
     Active Substance: PEMBROLIZUMAB
     Indication: Renal cell carcinoma
     Route: 042
     Dates: start: 20250524, end: 20250524
  3. LENVIMA [Concomitant]
     Active Substance: LENVATINIB
     Indication: Renal cell carcinoma
     Dosage: 2 TABLETS ONCE DAILY
     Route: 048
     Dates: start: 20230828

REACTIONS (6)
  - Malignant neoplasm progression [Unknown]
  - General physical health deterioration [Unknown]
  - Pustule [Unknown]
  - Movement disorder [Unknown]
  - Condition aggravated [Unknown]
  - Ascites [Unknown]
